FAERS Safety Report 25464139 (Version 5)
Quarter: 2025Q3

REPORT INFORMATION
  Report Type: Spontaneous
  Country: EU (occurrence: EU)
  Receive Date: 20250621
  Receipt Date: 20250728
  Transmission Date: 20251020
  Serious: Yes (Other)
  Sender: ALEXION PHARMACEUTICALS
  Company Number: EU-AstraZeneca-CH-00888814AM

PATIENT
  Age: 49 Year
  Sex: Female
  Weight: 63 kg

DRUGS (1)
  1. TAGRISSO [Suspect]
     Active Substance: OSIMERTINIB
     Dosage: 80 MILLIGRAM, QD
     Dates: start: 20250109

REACTIONS (13)
  - Arthralgia [Unknown]
  - Tendonitis [Unknown]
  - Tendon disorder [Unknown]
  - Arthralgia [Unknown]
  - Arthralgia [Unknown]
  - Myopathy [Unknown]
  - Diarrhoea [Unknown]
  - Glossodynia [Unknown]
  - Autoimmune disorder [Unknown]
  - Abdominal pain upper [Unknown]
  - Tendonitis [Unknown]
  - Muscle spasms [Unknown]
  - Collagen disorder [Unknown]

NARRATIVE: CASE EVENT DATE: 20250301
